FAERS Safety Report 22391782 (Version 1)
Quarter: 2023Q2

REPORT INFORMATION
  Report Type: Report from Study
  Country: IL (occurrence: IL)
  Receive Date: 20230601
  Receipt Date: 20230601
  Transmission Date: 20230721
  Serious: Yes (Hospitalization)
  Sender: FDA-Public Use
  Company Number: IL-ABBVIE-5186126

PATIENT
  Sex: Female

DRUGS (2)
  1. CARBIDOPA\LEVODOPA [Suspect]
     Active Substance: CARBIDOPA\LEVODOPA
     Indication: Parkinson^s disease
     Dosage: MORNING DOSAGE(ML) 14.5, CONTINUOUS DOSAGE (ML/H)  4.7, EXTRA DOSAGE (ML) 5.0?START DATE TEXT: UN...
     Route: 050
  2. CARBIDOPA\LEVODOPA [Suspect]
     Active Substance: CARBIDOPA\LEVODOPA
     Route: 050
     Dates: start: 20180131

REACTIONS (3)
  - Urinary tract infection [Recovered/Resolved]
  - Hallucination [Recovering/Resolving]
  - Tremor [Recovering/Resolving]
